FAERS Safety Report 17798032 (Version 1)
Quarter: 2020Q2

REPORT INFORMATION
  Report Type: Spontaneous
  Country: US (occurrence: US)
  Receive Date: 20200516
  Receipt Date: 20200516
  Transmission Date: 20200714
  Serious: No
  Sender: FDA-Public Use
  Company Number: None

PATIENT
  Age: 30 Year
  Sex: Female
  Weight: 69.75 kg

DRUGS (7)
  1. ALBUTERNOL SULFATE INHALER [Concomitant]
  2. MULTIVITAMIN [Concomitant]
     Active Substance: VITAMINS
  3. ETONOGESTREL AND ETHINYL ESTRADIOL VAGINAL RING [Suspect]
     Active Substance: ETHINYL ESTRADIOL\ETONOGESTREL
     Indication: CONTRACEPTION
     Dosage: ?          OTHER FREQUENCY:MONTHLY;?
     Route: 067
     Dates: start: 20200224
  4. MAGNESIUM [Concomitant]
     Active Substance: MAGNESIUM
  5. VITAMIN C [Concomitant]
     Active Substance: ASCORBIC ACID
  6. IPRATTOPIUM BROMIDE NASAL SPRAY [Concomitant]
  7. GLUCOSAMINE [Concomitant]
     Active Substance: GLUCOSAMINE

REACTIONS (4)
  - Complication associated with device [None]
  - Menorrhagia [None]
  - Hypomenorrhoea [None]
  - Vaginal haemorrhage [None]

NARRATIVE: CASE EVENT DATE: 20200508
